FAERS Safety Report 5120185-1 (Version None)
Quarter: 2006Q4

REPORT INFORMATION
  Report Type: 
  Country: None (occurrence: None)
  Receive Date: 20061004
  Receipt Date: 20060719
  Transmission Date: 20070319
  Serious: Yes (Hospitalization)
  Sender: FDA-Public Use
  Company Number: FR-BAYER-200610673BFR

PATIENT
  Age: 55 Year
  Sex: Male
  Weight: 75 kg

DRUGS (9)
  1. SORAFENIB [Suspect]
     Indication: RENAL CELL CARCINOMA STAGE UNSPECIFIED
     Dosage: TOTAL DAILY DOSE: 800 MG  UNIT DOSE: 200 MG
     Route: 048
     Dates: start: 20060321, end: 20060719
  2. BRICANYL [Concomitant]
     Indication: UNEVALUABLE EVENT
     Route: 048
  3. ATROVENT [Concomitant]
     Indication: UNEVALUABLE EVENT
     Route: 065
  4. SOLUPRED [Concomitant]
     Indication: UNEVALUABLE EVENT
     Route: 042
     Dates: end: 20060714
  5. SOLUPRED [Concomitant]
     Route: 048
     Dates: start: 20060715
  6. LASIX [Concomitant]
     Indication: OEDEMA
     Route: 042
     Dates: start: 20060713, end: 20060714
  7. MORPHINE SULFATE [Concomitant]
     Indication: PAIN
     Route: 048
     Dates: end: 20060716
  8. NEXIUM [Concomitant]
     Indication: GASTROINTESTINAL DISORDER
     Route: 048
     Dates: start: 20060715
  9. SKENAN [Concomitant]
     Indication: PAIN
     Route: 048
     Dates: start: 20060717

REACTIONS (5)
  - CHEST X-RAY ABNORMAL [None]
  - DYSPNOEA [None]
  - NEOPLASM PROGRESSION [None]
  - PLEURAL EFFUSION [None]
  - PULMONARY HYPERTENSION [None]
